FAERS Safety Report 5262702-7 (Version None)
Quarter: 2007Q1

REPORT INFORMATION
  Report Type: 
  Country: None (occurrence: None)
  Receive Date: 20070307
  Receipt Date: 20070209
  Transmission Date: 20070707
  Serious: Yes (Hospitalization)
  Sender: FDA-Public Use
  Company Number: 006#3#2007-00007

PATIENT
  Age: 95 Year
  Sex: Male

DRUGS (2)
  1. CORDIPATCH-10 (GLYCERYL TRINITRATE) [Suspect]
     Indication: MYOCARDIAL ISCHAEMIA
     Dosage: TRANSDERMAL
     Route: 062
  2. AMIODARONE 1 G (AMIODARONE) [Concomitant]

REACTIONS (5)
  - BLOOD CREATININE INCREASED [None]
  - BLOOD GLUCOSE INCREASED [None]
  - NAUSEA [None]
  - ORTHOSTATIC HYPOTENSION [None]
  - SYNCOPE [None]
